FAERS Safety Report 5232298-4 (Version None)
Quarter: 2007Q1

REPORT INFORMATION
  Report Type: 
  Country: None (occurrence: None)
  Receive Date: 20070207
  Receipt Date: 20070125
  Transmission Date: 20070707
  Serious: Yes (Other)
  Sender: FDA-Public Use
  Company Number: US-JNJFOC-20070107387

PATIENT
  Sex: Female
  Weight: 77.11 kg

DRUGS (8)
  1. FENTANYL TRANSDERMAL SYSTEM [Suspect]
     Route: 062
  2. FENTANYL TRANSDERMAL SYSTEM [Suspect]
     Route: 062
  3. FENTANYL TRANSDERMAL SYSTEM [Suspect]
     Route: 062
  4. FENTANYL TRANSDERMAL SYSTEM [Suspect]
     Route: 062
  5. FENTANYL TRANSDERMAL SYSTEM [Suspect]
     Route: 062
  6. FENTANYL TRANSDERMAL SYSTEM [Suspect]
     Indication: BACK PAIN
     Route: 062
  7. NEURONTIN [Concomitant]
     Indication: NEURALGIA
     Route: 048
  8. KLONOPIN [Concomitant]
     Route: 048

REACTIONS (5)
  - DRUG WITHDRAWAL SYNDROME [None]
  - FEELING ABNORMAL [None]
  - PREMATURE LABOUR [None]
  - THERAPEUTIC RESPONSE DECREASED [None]
  - WRONG TECHNIQUE IN DRUG USAGE PROCESS [None]
